FAERS Safety Report 14481935 (Version 1)
Quarter: 2018Q1

REPORT INFORMATION
  Report Type: Spontaneous
  Country: GB (occurrence: GB)
  Receive Date: 20180202
  Receipt Date: 20180202
  Transmission Date: 20180509
  Serious: Yes (Other)
  Sender: FDA-Public Use
  Company Number: GB-TEVA-2018-GB-853551

PATIENT
  Age: 57 Year
  Sex: Male
  Weight: 81 kg

DRUGS (7)
  1. CLOMIPRAMINE [Suspect]
     Active Substance: CLOMIPRAMINE
     Indication: ANXIETY
     Dosage: 50 MILLIGRAM DAILY;
     Route: 065
     Dates: start: 20171127
  2. TAMSULOSIN HYDROCHLORIDE. [Concomitant]
     Active Substance: TAMSULOSIN HYDROCHLORIDE
     Dosage: 1 DOSAGE FORMS DAILY; EACH MORNING AFTER BREAKFAST
     Dates: start: 20170905
  3. SERTRALINE [Concomitant]
     Active Substance: SERTRALINE HYDROCHLORIDE
     Dosage: 2 DOSAGE FORMS DAILY;
     Dates: start: 20171201
  4. DIAZEPAM. [Concomitant]
     Active Substance: DIAZEPAM
     Dates: start: 20171106, end: 20171120
  5. LOSARTAN. [Concomitant]
     Active Substance: LOSARTAN
     Dosage: 2 DOSAGE FORMS DAILY;
     Dates: start: 20171201
  6. PANTOPRAZOLE [Concomitant]
     Active Substance: PANTOPRAZOLE
     Dosage: 1 DOSAGE FORMS DAILY;
     Dates: start: 20170905
  7. TRIMETHOPRIM. [Concomitant]
     Active Substance: TRIMETHOPRIM
     Dosage: 2 DOSAGE FORMS DAILY;
     Dates: start: 20170923, end: 20170930

REACTIONS (1)
  - Atrioventricular block first degree [Recovered/Resolved]

NARRATIVE: CASE EVENT DATE: 20171127
